FAERS Safety Report 7495639-3 (Version None)
Quarter: 2011Q2

REPORT INFORMATION
  Report Type: 
  Country: None (occurrence: None)
  Receive Date: 20110523
  Receipt Date: 20110511
  Transmission Date: 20111010
  Serious: Yes (Hospitalization)
  Sender: FDA-Public Use
  Company Number: US-JNJFOC-20110506117

PATIENT
  Sex: Male

DRUGS (3)
  1. NUCYNTA [Suspect]
     Indication: PROCEDURAL PAIN
     Route: 048
     Dates: start: 20110401, end: 20110401
  2. NUCYNTA [Suspect]
     Route: 048
  3. NUCYNTA [Suspect]
     Route: 048
     Dates: start: 20110401, end: 20110401

REACTIONS (3)
  - HOSPITALISATION [None]
  - DRUG INEFFECTIVE [None]
  - FEELING ABNORMAL [None]
